FAERS Safety Report 9665522 (Version 1)
Quarter: 2013Q4

REPORT INFORMATION
  Report Type: Spontaneous
  Country: US (occurrence: None)
  Receive Date: 20131101
  Receipt Date: 20131101
  Transmission Date: 20140711
  Serious: Yes (Life-Threatening, Hospitalization)
  Sender: FDA-Public Use
  Company Number: None

PATIENT
  Age: 67 Year
  Sex: Female
  Weight: 104.33 kg

DRUGS (2)
  1. WELLBUTRIN [Suspect]
     Dosage: TAKEN BY MOUTH
     Dates: start: 20110601, end: 20130904
  2. METOCLOPRAM [Suspect]
     Dosage: TAKEN BY MOUTH

REACTIONS (4)
  - Nervous system disorder [None]
  - Speech disorder [None]
  - Mobility decreased [None]
  - Emotional disorder [None]
